FAERS Safety Report 6939704-5 (Version None)
Quarter: 2010Q3

REPORT INFORMATION
  Report Type: 
  Country: None (occurrence: None)
  Receive Date: 20100825
  Receipt Date: 20100816
  Transmission Date: 20110219
  Serious: No
  Sender: FDA-Public Use
  Company Number: US-BIOGENIDEC-2010BI021109

PATIENT
  Age: 39 Year
  Sex: Female

DRUGS (2)
  1. TYSABRI [Suspect]
     Indication: MULTIPLE SCLEROSIS
     Route: 042
     Dates: start: 20070927, end: 20080711
  2. TYSABRI [Suspect]
     Route: 042
     Dates: start: 20090629, end: 20100501

REACTIONS (2)
  - LYMPHATIC DISORDER [None]
  - LYMPHOCYTE COUNT INCREASED [None]
